FAERS Safety Report 6757763-X (Version None)
Quarter: 2010Q2

REPORT INFORMATION
  Report Type: 
  Country: None (occurrence: None)
  Receive Date: 20100607
  Receipt Date: 20100506
  Transmission Date: 20101027
  Serious: No
  Sender: FDA-Public Use
  Company Number: US-BAYER-201021816NA

PATIENT
  Age: 31 Year
  Sex: Female

DRUGS (1)
  1. MIRENA [Suspect]
     Indication: CONTRACEPTION
     Route: 015
     Dates: start: 20091101, end: 20100428

REACTIONS (6)
  - ABDOMINAL DISTENSION [None]
  - ACNE [None]
  - ALOPECIA [None]
  - SKIN ULCER [None]
  - VAGINAL INFECTION [None]
  - WEIGHT INCREASED [None]
